FAERS Safety Report 9646758 (Version 1)
Quarter: 2013Q4

REPORT INFORMATION
  Report Type: Spontaneous
  Country: US (occurrence: US)
  Receive Date: 20131027
  Receipt Date: 20131027
  Transmission Date: 20140711
  Serious: Yes (Other)
  Sender: FDA-Public Use
  Company Number: US-NAPPMUNDI-USA-2013-0102379

PATIENT
  Sex: Male

DRUGS (3)
  1. OXYCONTIN TABLETS [Suspect]
     Indication: DRUG ABUSE
     Route: 048
  2. XANAX [Suspect]
     Indication: DRUG ABUSE
     Route: 048
  3. HALLUCINOGENS [Suspect]
     Indication: DRUG ABUSE
     Route: 065

REACTIONS (1)
  - Drug abuse [Recovering/Resolving]
